FAERS Safety Report 6383091-0 (Version None)
Quarter: 2009Q3

REPORT INFORMATION
  Report Type: 
  Country: None (occurrence: None)
  Receive Date: 20090928
  Receipt Date: 20090917
  Transmission Date: 20100115
  Serious: Yes (Hospitalization)
  Sender: FDA-Public Use
  Company Number: 2009SP002439

PATIENT
  Sex: Female
  Weight: 68 kg

DRUGS (6)
  1. LUNESTA [Suspect]
     Indication: INSOMNIA
     Dosage: 2 MG; ; ORAL, 3 MG; ; PO
     Route: 048
  2. DYAZIDE [Suspect]
     Dates: end: 20070101
  3. TYLENOL (CAPLET) [Concomitant]
  4. TOPROL-XL [Concomitant]
  5. COZAAR [Concomitant]
  6. VITAMINS [Concomitant]

REACTIONS (5)
  - ABDOMINAL DISCOMFORT [None]
  - CHOLECYSTECTOMY [None]
  - CONDITION AGGRAVATED [None]
  - INSOMNIA [None]
  - PANCREATITIS [None]
